FAERS Safety Report 13475452 (Version 9)
Quarter: 2017Q4

REPORT INFORMATION
  Report Type: Report from Study
  Country: US (occurrence: US)
  Receive Date: 20170424
  Receipt Date: 20171030
  Transmission Date: 20180320
  Serious: Yes (Death, Hospitalization)
  Sender: FDA-Public Use
  Company Number: US-ACTELION-A-US2017-148609

PATIENT
  Age: 62 Year
  Sex: Female
  Weight: 71.2 kg

DRUGS (6)
  1. ADCIRCA [Concomitant]
     Active Substance: TADALAFIL
  2. VELETRI [Suspect]
     Active Substance: EPOPROSTENOL
     Indication: PULMONARY HYPERTENSION
     Dosage: 16 NG/KG, PER MIN
     Route: 042
     Dates: start: 20150415
  3. WARFARIN [Concomitant]
     Active Substance: WARFARIN
  4. VELETRI [Suspect]
     Active Substance: EPOPROSTENOL
     Dosage: 16 NG/KG, PER MIN
     Route: 042
     Dates: start: 20150415
  5. VELETRI [Suspect]
     Active Substance: EPOPROSTENOL
     Dosage: 17 NG/KG, PER MIN
     Route: 042
  6. AMLODIPINE [Concomitant]
     Active Substance: AMLODIPINE BESYLATE

REACTIONS (25)
  - Death [Fatal]
  - Neuropathy peripheral [Unknown]
  - Palpitations [Unknown]
  - Heart rate increased [Unknown]
  - Dyspnoea [Unknown]
  - Syncope [Unknown]
  - Oxygen saturation decreased [Unknown]
  - Dysstasia [Unknown]
  - Productive cough [Unknown]
  - Dyspnoea exertional [Unknown]
  - Feeling abnormal [Unknown]
  - Pneumonia [Unknown]
  - Pleural effusion [Unknown]
  - Malaise [Unknown]
  - Wheezing [Unknown]
  - Abdominal distension [Unknown]
  - Nasal congestion [Unknown]
  - Bronchitis [Unknown]
  - Anxiety [Unknown]
  - Initial insomnia [Unknown]
  - Nasopharyngitis [Unknown]
  - Dehydration [Unknown]
  - Loss of consciousness [Unknown]
  - Sinus disorder [Unknown]
  - Chest pain [Unknown]

NARRATIVE: CASE EVENT DATE: 20171021
